FAERS Safety Report 22353933 (Version 1)
Quarter: 2023Q2

REPORT INFORMATION
  Report Type: Spontaneous
  Country: FR (occurrence: FR)
  Receive Date: 20230523
  Receipt Date: 20230523
  Transmission Date: 20230722
  Serious: Yes (Other)
  Sender: FDA-Public Use
  Company Number: FR-Accord-358024

PATIENT
  Age: 62 Year
  Sex: Female

DRUGS (6)
  1. CLOZAPINE [Suspect]
     Active Substance: CLOZAPINE
     Indication: Dementia with Lewy bodies
     Dosage: COMPOUNDED PREPARATION
  2. PIMAVANSERIN [Concomitant]
     Active Substance: PIMAVANSERIN
     Indication: Behaviour disorder
     Dosage: RECEIVED A TREATMENT FOR 4 TO 6 WEEKS
  3. TRAZODONE [Concomitant]
     Active Substance: TRAZODONE HYDROCHLORIDE
     Indication: Behaviour disorder
     Dosage: RECEIVED A TREATMENT FOR 4 TO 6 WEEKS
  4. MELATONIN [Concomitant]
     Active Substance: MELATONIN
     Indication: Insomnia
  5. OXAZEPAM [Concomitant]
     Active Substance: OXAZEPAM
     Indication: Insomnia
  6. CLOZAPINE [Suspect]
     Active Substance: CLOZAPINE
     Indication: Dementia with Lewy bodies

REACTIONS (6)
  - Drug intolerance [Recovered/Resolved]
  - Pleurothotonus [Recovered/Resolved]
  - Fall [Recovering/Resolving]
  - Off label use [Unknown]
  - Depressed level of consciousness [Unknown]
  - Balance disorder [Recovering/Resolving]
